FAERS Safety Report 21328679 (Version 1)
Quarter: 2022Q3

REPORT INFORMATION
  Report Type: Spontaneous
  Country: US (occurrence: US)
  Receive Date: 20220913
  Receipt Date: 20220913
  Transmission Date: 20221027
  Serious: No
  Sender: FDA-Public Use
  Company Number: US-PFIZER INC-PV202200061001

PATIENT
  Age: 64 Year

DRUGS (1)
  1. PREMARIN [Suspect]
     Active Substance: ESTROGENS, CONJUGATED
     Dosage: INSERT 1 GRAM TWICE WEEKLY
     Route: 067
     Dates: start: 20220810, end: 20220824

REACTIONS (6)
  - Headache [Recovering/Resolving]
  - Dyspepsia [Recovering/Resolving]
  - Alopecia [Recovering/Resolving]
  - Anxiety [Recovering/Resolving]
  - Insomnia [Recovering/Resolving]
  - Off label use [Unknown]

NARRATIVE: CASE EVENT DATE: 20220801
